FAERS Safety Report 19922234 (Version 2)
Quarter: 2021Q4

REPORT INFORMATION
  Report Type: Spontaneous
  Country: US (occurrence: US)
  Receive Date: 20211006
  Receipt Date: 20211019
  Transmission Date: 20220303
  Serious: No
  Sender: FDA-Public Use
  Company Number: US-AMGEN-USASP2021151305

PATIENT
  Sex: Female

DRUGS (1)
  1. REPATHA [Suspect]
     Active Substance: EVOLOCUMAB
     Indication: Hypercholesterolaemia
     Dosage: 140 MILLIGRAM, Q2WK
     Route: 065
     Dates: end: 20210701

REACTIONS (6)
  - Pain in extremity [Unknown]
  - Memory impairment [Recovering/Resolving]
  - Pain [Unknown]
  - Drug ineffective [Unknown]
  - Myalgia [Recovered/Resolved]
  - Nausea [Not Recovered/Not Resolved]
